FAERS Safety Report 8037140-4 (Version None)
Quarter: 2012Q1

REPORT INFORMATION
  Report Type: 
  Country: None (occurrence: None)
  Receive Date: 20120111
  Receipt Date: 20120109
  Transmission Date: 20120608
  Serious: Yes (Hospitalization, Disabling, Other)
  Sender: FDA-Public Use
  Company Number: US-PFIZER INC-2011143771

PATIENT
  Sex: Male

DRUGS (1)
  1. CHANTIX [Suspect]
     Indication: SMOKING CESSATION THERAPY
     Dosage: 1 MG, DAILY
     Dates: start: 20070401, end: 20080301

REACTIONS (7)
  - SUICIDE ATTEMPT [None]
  - ANXIETY [None]
  - ABNORMAL BEHAVIOUR [None]
  - DEPRESSION [None]
  - MENTAL DISORDER [None]
  - EMOTIONAL DISTRESS [None]
  - AGGRESSION [None]
